FAERS Safety Report 8103359-7 (Version None)
Quarter: 2011Q4

REPORT INFORMATION
  Report Type: 
  Country: None (occurrence: None)
  Receive Date: 20111222
  Receipt Date: 20111017
  Transmission Date: 20120403
  Serious: Yes (Hospitalization)
  Sender: FDA-Public Use
  Company Number: UTC-011353

PATIENT
  Age: 48 Year
  Sex: Female
  Weight: 95 kg

DRUGS (3)
  1. REVATIO [Concomitant]
  2. TYVASO [Suspect]
     Indication: COR PULMONALE CHRONIC
     Dosage: 72  MCG (18 MCG, 4 IN 1 D), INHALATION
     Route: 055
     Dates: start: 20110801
  3. DIURETICS (DIURETICS) [Concomitant]

REACTIONS (2)
  - BLOOD COUNT ABNORMAL [None]
  - TRANSPLANT FAILURE [None]
